FAERS Safety Report 7943408-X (Version None)
Quarter: 2011Q4

REPORT INFORMATION
  Report Type: 
  Country: None (occurrence: None)
  Receive Date: 20111128
  Receipt Date: 20111116
  Transmission Date: 20120403
  Serious: Yes (Hospitalization)
  Sender: FDA-Public Use
  Company Number: US-ELI_LILLY_AND_COMPANY-US200910002069

PATIENT
  Sex: Female
  Weight: 50.79 kg

DRUGS (10)
  1. TRAZODONE HCL [Concomitant]
  2. FORTEO [Suspect]
     Indication: OSTEOPOROSIS
     Dosage: 20 UG, QD
     Route: 065
     Dates: start: 20090901
  3. FORTEO [Suspect]
     Dosage: 20 UG, QD
     Route: 065
  4. EFFEXOR [Concomitant]
  5. LISINOPRIL [Concomitant]
  6. FORTEO [Suspect]
     Dosage: 20 UG, QD
     Route: 065
  7. VITAMIN D [Concomitant]
  8. FORTEO [Suspect]
     Dosage: 20 UG, QD
     Route: 065
     Dates: end: 20110817
  9. FORTEO [Suspect]
     Dosage: 20 UG, QD
     Route: 065
  10. SYNTHROID [Concomitant]

REACTIONS (8)
  - DRUG INEFFECTIVE [None]
  - BONE DENSITY DECREASED [None]
  - OSTEOPOROSIS [None]
  - ARTHRITIS [None]
  - INJECTION SITE HAEMATOMA [None]
  - EMOTIONAL DISORDER [None]
  - CONSTIPATION [None]
  - NAUSEA [None]
